FAERS Safety Report 8529425 (Version 2)
Quarter: 2022Q1

REPORT INFORMATION
  Report Type: Report from Study
  Country: US (occurrence: None)
  Receive Date: 20120425
  Receipt Date: 20220317
  Transmission Date: 20220423
  Serious: Yes (Hospitalization)
  Sender: FDA-Public Use
  Company Number: US-ROCHE-1042786

PATIENT
  Age: 64 Year
  Sex: Female
  Weight: 56.7 kg

DRUGS (5)
  1. BEVACIZUMAB [Suspect]
     Active Substance: BEVACIZUMAB
     Indication: Ovarian epithelial cancer
     Dosage: DOSE HELD FOR PRIOR TO DEBULKING SURGERY. LAST ADMINISTERED DATE BEFORE AGITATION, CONFUSION AND COG
     Route: 042
     Dates: start: 20111122
  2. CARBOPLATIN [Suspect]
     Active Substance: CARBOPLATIN
     Indication: Ovarian epithelial cancer
     Dosage: AUC = 6, DATE OF LAST DOSE PRIOR TO SAE: 03/JAN/2012, LAST ADMINISTERED DATE BEFORE AGITATION, CONFU
     Route: 042
     Dates: start: 20111122
  3. PACLITAXEL [Suspect]
     Active Substance: PACLITAXEL
     Indication: Ovarian epithelial cancer
     Dosage: WEEKLY DOSE: 128 MG, DATE OF LAST DOSE PRIOR TO SAE: 17/JAN/2012, LAST ADMINISTERED DATE BEFORE AGIT
     Route: 042
     Dates: start: 20111122
  4. LORAZEPAM [Concomitant]
     Active Substance: LORAZEPAM
  5. SCOPOLAMINE [Concomitant]
     Active Substance: SCOPOLAMINE
     Indication: Product used for unknown indication

REACTIONS (10)
  - Nausea [Recovered/Resolved]
  - Vomiting [Recovered/Resolved]
  - Hypomagnesaemia [Recovered/Resolved]
  - Hypokalaemia [Recovered/Resolved]
  - Dehydration [Recovered/Resolved]
  - Cognitive disorder [Recovered/Resolved]
  - Blood creatinine increased [Recovered/Resolved]
  - Agitation [Not Recovered/Not Resolved]
  - Confusional state [Not Recovered/Not Resolved]
  - Cognitive disorder [Not Recovered/Not Resolved]

NARRATIVE: CASE EVENT DATE: 20120122
